FAERS Safety Report 9507421 (Version 1)
Quarter: 2013Q1

REPORT INFORMATION
  Report Type: Spontaneous
  Country: US (occurrence: None)
  Receive Date: 20130305
  Receipt Date: 20130305
  Transmission Date: 20140127
  Serious: Yes (Hospitalization)
  Sender: FDA-Public Use
  Company Number: 163-21880-12021484

PATIENT
  Age: 66 Year
  Sex: Male
  Weight: 102.06 kg

DRUGS (10)
  1. REVLIMID (LENALIDOMIDE) (25 MILLIGRAM, CAPSULES) [Suspect]
     Indication: PLASMA CELL MYELOMA
     Dosage: 25 MG, DAILY X 14 DAYS, PO
     Route: 048
     Dates: start: 201008
  2. ACYCLOVIR (ACICLOVIR) [Concomitant]
  3. AMLODIPINE (AMLODIPINE) [Concomitant]
  4. BABY ASPIRIN (ACETYLSALICYLIC ACID) [Concomitant]
  5. FEXOFENADINE [Concomitant]
  6. METOPROLOL (METOPROLOL) [Concomitant]
  7. VITAMINS [Concomitant]
  8. OSCAL (CALCIUM CARBONATE) [Concomitant]
  9. STOOL SOFTENER (DOCUSATE SODIUM) [Concomitant]
  10. SYMBICORT (SYMBICOR TURBUHALER ^DRACO^) [Concomitant]

REACTIONS (1)
  - Pneumonia [None]
